FAERS Safety Report 9281853 (Version 2)
Quarter: 2013Q2

REPORT INFORMATION
  Report Type: Spontaneous
  Country: IT (occurrence: IT)
  Receive Date: 20130510
  Receipt Date: 20130516
  Transmission Date: 20140414
  Serious: Yes (Death)
  Sender: FDA-Public Use
  Company Number: IT-ROCHE-1222086

PATIENT
  Age: 48 Year
  Sex: Female
  Weight: 55 kg

DRUGS (1)
  1. ROCEFIN [Suspect]
     Indication: RESPIRATORY TRACT INFECTION
     Route: 030
     Dates: start: 20130216, end: 20130216

REACTIONS (5)
  - Anaphylactic shock [Fatal]
  - Dyspnoea [Fatal]
  - Psychomotor hyperactivity [Fatal]
  - Vision blurred [Fatal]
  - Intentional drug misuse [Fatal]
